FAERS Safety Report 8053066 (Version 2)
Quarter: 2020Q3

REPORT INFORMATION
  Report Type: Spontaneous
  Country: NL (occurrence: NL)
  Receive Date: 20110725
  Receipt Date: 20200721
  Transmission Date: 20201103
  Serious: Yes (Death, Hospitalization)
  Sender: FDA-Public Use
  Company Number: PHHY2011NL66168

PATIENT
  Age: 64 Year
  Sex: Male

DRUGS (1)
  1. METFORMIN [Suspect]
     Active Substance: METFORMIN HYDROCHLORIDE
     Indication: TYPE 2 DIABETES MELLITUS
     Dosage: 1700 MG QD
     Route: 065

REACTIONS (4)
  - Lactic acidosis [Fatal]
  - Acute kidney injury [Fatal]
  - Cardiogenic shock [Fatal]
  - Hepatic failure [Fatal]
